FAERS Safety Report 11880133 (Version 1)
Quarter: 2015Q4

REPORT INFORMATION
  Report Type: Spontaneous
  Country: None (occurrence: None)
  Receive Date: 20151230
  Receipt Date: 20151230
  Transmission Date: 20160305
  Serious: Yes (Other)
  Sender: FDA-Public Use
  Company Number: None

PATIENT
  Age: 53 Year
  Sex: Female
  Weight: 70.31 kg

DRUGS (4)
  1. GAMMAPLEX [Suspect]
     Active Substance: HUMAN IMMUNOGLOBULIN G
     Indication: LYME DISEASE
     Route: 042
     Dates: start: 20151229, end: 20151229
  2. GAMMAPLEX [Suspect]
     Active Substance: HUMAN IMMUNOGLOBULIN G
     Indication: NEUROPATHY PERIPHERAL
     Route: 042
     Dates: start: 20151229, end: 20151229
  3. TYLENOL [Concomitant]
     Active Substance: ACETAMINOPHEN
  4. BENADRYL [Concomitant]
     Active Substance: DIPHENHYDRAMINE HYDROCHLORIDE

REACTIONS (1)
  - Vision blurred [None]

NARRATIVE: CASE EVENT DATE: 20151229
